FAERS Safety Report 7036782-2 (Version None)
Quarter: 2010Q4

REPORT INFORMATION
  Report Type: 
  Country: None (occurrence: None)
  Receive Date: 20101011
  Receipt Date: 20101001
  Transmission Date: 20110411
  Serious: Yes (Other)
  Sender: FDA-Public Use
  Company Number: US-BAYER-201027088NA

PATIENT
  Age: 30 Year
  Sex: Female
  Weight: 57 kg

DRUGS (5)
  1. MIRENA [Suspect]
     Indication: CONTRACEPTION
     Dosage: FREQUENCY: CONTINUOUS
     Route: 015
     Dates: start: 20071219
  2. BETADINE [Concomitant]
     Indication: FEMALE STERILISATION
  3. MULTI-VITAMINS [Concomitant]
  4. TYLENOL [Concomitant]
  5. TYLENOL W/ CODEINE NO. 3 [Concomitant]

REACTIONS (12)
  - ABDOMINAL DISCOMFORT [None]
  - ABDOMINAL DISTENSION [None]
  - ABORTION SPONTANEOUS [None]
  - CONSTIPATION [None]
  - DEVICE DISLOCATION [None]
  - DEVICE EXPULSION [None]
  - ECTOPIC PREGNANCY [None]
  - MENSTRUATION IRREGULAR [None]
  - OVARIAN MASS [None]
  - PELVIC DISCOMFORT [None]
  - PELVIC PAIN [None]
  - VAGINAL DISCHARGE [None]
